FAERS Safety Report 4602637-3 (Version None)
Quarter: 2005Q1

REPORT INFORMATION
  Report Type: 
  Country: None (occurrence: None)
  Receive Date: 20050309
  Receipt Date: 20050225
  Transmission Date: 20050727
  Serious: Yes (Hospitalization)
  Sender: FDA-Public Use
  Company Number: DE-BRISTOL-MYERS SQUIBB COMPANY-12878302

PATIENT
  Age: 52 Year
  Weight: 63 kg

DRUGS (5)
  1. CISPLATIN [Suspect]
     Indication: SMALL CELL LUNG CANCER STAGE UNSPECIFIED
     Route: 042
     Dates: start: 20050131
  2. ETOPOSIDE [Suspect]
     Indication: SMALL CELL LUNG CANCER STAGE UNSPECIFIED
     Route: 042
     Dates: start: 20050131
  3. METAMIZOLE SODIUM [Concomitant]
     Indication: PAIN
     Dosage: 40 DROPS 4X/DAY
     Route: 048
  4. LISINOPRIL [Concomitant]
     Indication: HYPERTENSION
     Route: 048
  5. ONDANSETRON [Concomitant]
     Indication: VOMITING
     Route: 048

REACTIONS (2)
  - PNEUMONIA [None]
  - PYREXIA [None]
